FAERS Safety Report 4818272-8 (Version None)
Quarter: 2005Q3

REPORT INFORMATION
  Report Type: 
  Country: None (occurrence: None)
  Receive Date: 20050929
  Receipt Date: 20050622
  Transmission Date: 20060218
  Serious: No
  Sender: FDA-Public Use
  Company Number: 05P-163-0303763-00

PATIENT
  Age: 67 Year
  Sex: Female
  Weight: 64.8644 kg

DRUGS (7)
  1. HUMIRA [Suspect]
     Indication: RHEUMATOID ARTHRITIS
     Dosage: 40 MG, 1 IN 2 WK, SUBCUTANEOUS
     Route: 058
     Dates: start: 20050413, end: 20050525
  2. PREDNISONE [Concomitant]
  3. ESTROGENS CONJUGATED [Concomitant]
  4. PROMETHAZINE [Concomitant]
  5. ALPRAZOLAM [Concomitant]
  6. GABAPENTIN [Concomitant]
  7. ULTRASET [Concomitant]

REACTIONS (2)
  - OEDEMA PERIPHERAL [None]
  - PAIN IN EXTREMITY [None]
